FAERS Safety Report 11823752 (Version 2)
Quarter: 2015Q4

REPORT INFORMATION
  Report Type: Report from Study
  Country: US (occurrence: US)
  Receive Date: 20151210
  Receipt Date: 20151222
  Transmission Date: 20160305
  Serious: Yes (Hospitalization)
  Sender: FDA-Public Use
  Company Number: US-ABBVIE-15K-163-1517175-00

PATIENT
  Age: 98 Year
  Sex: Female

DRUGS (2)
  1. HUMIRA [Suspect]
     Active Substance: ADALIMUMAB
     Route: 058
     Dates: start: 201511
  2. HUMIRA [Suspect]
     Active Substance: ADALIMUMAB
     Indication: COLITIS ULCERATIVE
     Route: 058
     Dates: start: 201507, end: 201510

REACTIONS (4)
  - Crohn^s disease [Unknown]
  - Colitis ulcerative [Recovering/Resolving]
  - Failure to thrive [Unknown]
  - Dehydration [Unknown]

NARRATIVE: CASE EVENT DATE: 201510
